FAERS Safety Report 9304514 (Version 7)
Quarter: 2014Q1

REPORT INFORMATION
  Report Type: Spontaneous
  Country: US (occurrence: US)
  Receive Date: 20130523
  Receipt Date: 20140210
  Transmission Date: 20141002
  Serious: Yes (Other)
  Sender: FDA-Public Use
  Company Number: US-AMGEN-USASP2013035885

PATIENT
  Age: 73 Year
  Sex: Female
  Weight: 69.84 kg

DRUGS (21)
  1. PROCRIT [Suspect]
     Indication: ANAEMIA
     Dosage: 40000 UNIT, 2 TIMES/WK
     Route: 058
     Dates: start: 20120530
  2. PROCRIT [Suspect]
     Indication: NEPHROGENIC ANAEMIA
  3. BOCEPREVIR [Suspect]
     Indication: HEPATITIS C
     Dosage: UNK
     Route: 065
     Dates: start: 201204
  4. RIBAVIRIN [Concomitant]
     Indication: HEPATITIS C
     Dosage: UNK
     Dates: start: 20120424, end: 20121031
  5. INTERFERON [Concomitant]
     Indication: HEPATITIS C
     Dosage: UNK
     Dates: start: 20120424, end: 20121031
  6. COUMADINE [Concomitant]
     Indication: ATRIAL FIBRILLATION
     Dosage: 6 MG EXCEPT WEDNESDAY QD
  7. COUMADINE [Concomitant]
     Dosage: 4 MG,  EVERY WEDNESDAY
     Route: 048
  8. THYROID [Concomitant]
     Dosage: UNK
  9. LASIX                              /00032601/ [Concomitant]
     Dosage: 40 MG, 2 TABLETS BY MOUTH DAILY
     Route: 048
  10. LASIX                              /00032601/ [Concomitant]
     Dosage: 10 MG, QD
     Route: 048
  11. XANAX [Concomitant]
     Dosage: UNK
  12. LEVOXYL [Concomitant]
     Dosage: 88 MCG, EVERY MORNING BEFORE BREAKFAST
     Route: 048
  13. LEVOXYL [Concomitant]
     Dosage: 125 MUG, EVERY MORNING BEFORE BREAKFAST
     Route: 048
  14. CALAN                              /00014302/ [Concomitant]
     Dosage: 80 MG, 2 TABLETS BY MOUTH 2 TIMES DAILY. 1 TAB IN MORNING, 1/2 IN AFTERNOON, 1 AT BEDTIME.
     Route: 048
  15. PRINIVIL [Concomitant]
     Dosage: 40 MG, 0.5 TABLETS BY MOUTH DAILY
     Route: 048
  16. PRINIVIL [Concomitant]
     Dosage: 30 MG, QD
     Route: 048
  17. OMEGA 3 CARDIO [Concomitant]
     Dosage: 1000 MG, TAKE 1 CAP QD
     Route: 048
  18. B-COMPLEX                          /07503601/ [Concomitant]
     Dosage: UNK
     Route: 048
  19. ALLOPURINOL [Concomitant]
     Dosage: UNK
  20. VITAMIN D3 [Concomitant]
     Dosage: UNK
     Route: 048
  21. ALDACTONE                          /00006201/ [Concomitant]
     Dosage: 1/4 OF 25 MG DAILY
     Route: 048

REACTIONS (22)
  - Refractory cytopenia with unilineage dysplasia [Unknown]
  - Anaemia [Not Recovered/Not Resolved]
  - Therapeutic response decreased [Unknown]
  - Aplasia pure red cell [Recovered/Resolved]
  - Neutralising antibodies positive [Unknown]
  - Anti-erythropoietin antibody positive [Unknown]
  - Hypoaesthesia [Recovered/Resolved]
  - Paraesthesia [Recovered/Resolved]
  - Hyperuricaemia [Unknown]
  - Blood erythropoietin increased [Unknown]
  - Increased tendency to bruise [Unknown]
  - Palpitations [Unknown]
  - Supraventricular tachycardia [Unknown]
  - Raynaud^s phenomenon [Recovering/Resolving]
  - Lymphadenopathy [Recovered/Resolved]
  - Reticulocyte count decreased [Unknown]
  - Vision blurred [Unknown]
  - Ecchymosis [Unknown]
  - Vertigo [Unknown]
  - Fatigue [Unknown]
  - Musculoskeletal stiffness [Unknown]
  - Arthritis [Unknown]
